FAERS Safety Report 5521673-6 (Version None)
Quarter: 2007Q4

REPORT INFORMATION
  Report Type: 
  Country: None (occurrence: None)
  Receive Date: 20071120
  Receipt Date: 20071112
  Transmission Date: 20080405
  Serious: Yes (Life-Threatening)
  Sender: FDA-Public Use
  Company Number: PHNU2007DE03745

PATIENT
  Sex: Male

DRUGS (6)
  1. LEPONEX [Suspect]
     Indication: SCHIZOPHRENIA
     Dosage: 300 MG/DAY
     Route: 048
     Dates: start: 20070219, end: 20070416
  2. RISPERDAL [Suspect]
     Dosage: 2 MG/DAY
     Route: 048
     Dates: start: 20070326, end: 20070409
  3. RISPERDAL [Suspect]
     Dosage: 3 MG/DAY
     Route: 048
     Dates: start: 20070410, end: 20070416
  4. TAVOR [Concomitant]
     Dosage: 3 MG/DAY
     Route: 048
     Dates: start: 20070326, end: 20070328
  5. TAVOR [Concomitant]
     Dosage: 4 MG/DAY
     Route: 048
     Dates: start: 20070329, end: 20070413
  6. TAVOR [Concomitant]
     Dosage: 2 MG/DAY
     Route: 048
     Dates: start: 20070414, end: 20070416

REACTIONS (13)
  - ALANINE AMINOTRANSFERASE INCREASED [None]
  - ASPARTATE AMINOTRANSFERASE INCREASED [None]
  - BLOOD CREATINE PHOSPHOKINASE INCREASED [None]
  - BRAIN OEDEMA [None]
  - DELIRIUM [None]
  - GRAND MAL CONVULSION [None]
  - HYPONATRAEMIA [None]
  - PNEUMONIA ASPIRATION [None]
  - POLYDIPSIA [None]
  - PUPIL FIXED [None]
  - RESTLESSNESS [None]
  - VOMITING [None]
  - WHITE BLOOD CELL COUNT INCREASED [None]
